FAERS Safety Report 10081314 (Version 2)
Quarter: 2014Q2

REPORT INFORMATION
  Report Type: Spontaneous
  Country: US (occurrence: US)
  Receive Date: 20140416
  Receipt Date: 20140528
  Transmission Date: 20141212
  Serious: Yes (Other)
  Sender: FDA-Public Use
  Company Number: US-PERRIGO-14US003738

PATIENT
  Age: 32 Year
  Sex: Female
  Weight: 63.49 kg

DRUGS (3)
  1. NIGHTTIME ORIGINAL 6HOUR 335 [Suspect]
     Indication: COUGH
     Dosage: 30 ML, EVERY 4 TO 6 HOURS
     Route: 048
     Dates: start: 20140407, end: 20140407
  2. NIGHTTIME ORIGINAL 6HOUR 335 [Suspect]
     Indication: OROPHARYNGEAL PAIN
  3. IBUPROFEN [Concomitant]
     Indication: TOOTHACHE
     Dosage: 800 MG, UNK
     Route: 048
     Dates: start: 20140401

REACTIONS (5)
  - Hypersensitivity [Recovering/Resolving]
  - Pruritus generalised [Recovering/Resolving]
  - Lip swelling [Recovering/Resolving]
  - Urticaria [Recovering/Resolving]
  - Inappropriate schedule of drug administration [Recovered/Resolved]
